FAERS Safety Report 14538535 (Version 1)
Quarter: 2018Q1

REPORT INFORMATION
  Report Type: Report from Study
  Country: AU (occurrence: AU)
  Receive Date: 20180216
  Receipt Date: 20180216
  Transmission Date: 20180509
  Serious: No
  Sender: FDA-Public Use
  Company Number: AU-ROCHE-2074948

PATIENT
  Age: 81 Year
  Sex: Female

DRUGS (3)
  1. OCRELIZUMAB. [Suspect]
     Active Substance: OCRELIZUMAB
     Indication: RELAPSING-REMITTING MULTIPLE SCLEROSIS
     Dosage: RECEIVED 2X300MG. 9/JAN/18 AND 23/JAN/18
     Route: 041
     Dates: start: 20180109
  2. OCRELIZUMAB. [Suspect]
     Active Substance: OCRELIZUMAB
     Route: 041
     Dates: start: 20180123
  3. OCRELIZUMAB. [Suspect]
     Active Substance: OCRELIZUMAB
     Route: 041

REACTIONS (5)
  - Headache [Recovering/Resolving]
  - Insomnia [Not Recovered/Not Resolved]
  - Urinary tract infection [Unknown]
  - Restlessness [Unknown]
  - Spinal pain [Recovering/Resolving]

NARRATIVE: CASE EVENT DATE: 20180123
